FAERS Safety Report 8683125 (Version 2)
Quarter: 2012Q4

REPORT INFORMATION
  Report Type: 
  Country: US (occurrence: US)
  Receive Date: 20120726
  Receipt Date: 20120828
  Transmission Date: 20130627
  Serious: No
  Sender: FDA-Public Use
  Company Number: US-009507513-1207USA005292

PATIENT

DRUGS (8)
  1. COZAAR [Suspect]
     Indication: HYPERTENSION
     Dosage: 50 mg, qd
     Route: 048
     Dates: start: 20120531, end: 2012
  2. COZAAR [Suspect]
     Indication: CEREBROVASCULAR ACCIDENT
  3. ATENOL [Concomitant]
  4. GLYBURIDE [Concomitant]
  5. ALBUTEROL [Concomitant]
  6. OMEGA-3 MARINE TRIGLYCERIDES [Concomitant]
     Dosage: 1000 mg, qd
     Route: 048
     Dates: start: 20100315
  7. TENORMIN [Concomitant]
     Dosage: 50 mg, bid
     Route: 048
     Dates: start: 20110425
  8. DIABETA [Concomitant]
     Indication: DIABETES MELLITUS
     Dosage: 10 mg, bid
     Route: 048
     Dates: start: 20120427

REACTIONS (5)
  - Influenza like illness [Recovered/Resolved]
  - Feeling hot [Recovered/Resolved]
  - Nausea [Recovered/Resolved]
  - Vomiting [Recovered/Resolved]
  - Dizziness [Unknown]
